FAERS Safety Report 13213532 (Version 1)
Quarter: 2017Q1

REPORT INFORMATION
  Report Type: Spontaneous
  Country: US (occurrence: US)
  Receive Date: 20170210
  Receipt Date: 20170210
  Transmission Date: 20170428
  Serious: No
  Sender: FDA-Public Use
  Company Number: US-PERRIGO-16US018500

PATIENT
  Age: 15 Year
  Sex: Male
  Weight: 65.76 kg

DRUGS (2)
  1. TRETINOIN. [Suspect]
     Active Substance: TRETINOIN
     Dosage: ONE PEA SIZED APPLICATION, QHS
     Route: 061
     Dates: start: 20160704
  2. TRETINOIN. [Suspect]
     Active Substance: TRETINOIN
     Indication: ACNE
     Dosage: ONE PEA SIZED APPLICATION, QHS
     Route: 061
     Dates: start: 201511, end: 20160703

REACTIONS (1)
  - Drug effect decreased [Unknown]

NARRATIVE: CASE EVENT DATE: 20160704
